FAERS Safety Report 6617288-9 (Version None)
Quarter: 2010Q1

REPORT INFORMATION
  Report Type: 
  Country: None (occurrence: None)
  Receive Date: 20100307
  Receipt Date: 20090702
  Transmission Date: 20100710
  Serious: No
  Sender: FDA-Public Use
  Company Number: DE-BAYER-200919572GPV

PATIENT

DRUGS (1)
  1. NEXAVAR [Suspect]
     Indication: DRUG USE FOR UNKNOWN INDICATION
     Route: 065

REACTIONS (3)
  - DISORIENTATION [None]
  - DYSARTHRIA [None]
  - SIMPLE PARTIAL SEIZURES [None]
